FAERS Safety Report 6307265-X (Version None)
Quarter: 2009Q3

REPORT INFORMATION
  Report Type: 
  Country: None (occurrence: None)
  Receive Date: 20090813
  Receipt Date: 20090805
  Transmission Date: 20100115
  Serious: Yes (Other)
  Sender: FDA-Public Use
  Company Number: CA-BAYER-200928986NA

PATIENT
  Age: 66 Year
  Sex: Male

DRUGS (7)
  1. CIPRO [Suspect]
     Indication: URINARY TRACT INFECTION
     Dosage: TOTAL DAILY DOSE: 1000 MG  UNIT DOSE: 500 MG
     Dates: start: 20090728
  2. NORVASC [Concomitant]
  3. MICARDIS [Concomitant]
  4. CRESTOR [Concomitant]
  5. ASAPHEN [Concomitant]
  6. MONOCOR [Concomitant]
  7. SYNTHROID [Concomitant]

REACTIONS (3)
  - AURICULAR SWELLING [None]
  - EAR DISCOMFORT [None]
  - RASH PUSTULAR [None]
